FAERS Safety Report 14072603 (Version 3)
Quarter: 2017Q4

REPORT INFORMATION
  Report Type: Report from Study
  Country: US (occurrence: US)
  Receive Date: 20171011
  Receipt Date: 20171117
  Transmission Date: 20180321
  Serious: Yes (Hospitalization, Other)
  Sender: FDA-Public Use
  Company Number: US-GILEAD-2017-0298270

PATIENT
  Age: 69 Year
  Sex: Female
  Weight: 78 kg

DRUGS (4)
  1. AMBRISENTAN [Suspect]
     Active Substance: AMBRISENTAN
     Indication: PULMONARY ARTERIAL HYPERTENSION
     Dosage: 5 MG, QD
     Route: 065
     Dates: start: 20170905
  2. OXYGEN. [Concomitant]
     Active Substance: OXYGEN
  3. SILDENAFIL. [Concomitant]
     Active Substance: SILDENAFIL
  4. SILDENAFIL. [Concomitant]
     Active Substance: SILDENAFIL

REACTIONS (8)
  - Tachycardia [Unknown]
  - Fatigue [Unknown]
  - Dizziness exertional [Unknown]
  - Carbon dioxide increased [Unknown]
  - Dyspnoea [Not Recovered/Not Resolved]
  - Headache [Recovered/Resolved]
  - Malaise [Not Recovered/Not Resolved]
  - Pulmonary hypertension [Not Recovered/Not Resolved]
